FAERS Safety Report 12360249 (Version 5)
Quarter: 2016Q4

REPORT INFORMATION
  Report Type: Spontaneous
  Country: US (occurrence: US)
  Receive Date: 20160512
  Receipt Date: 20161003
  Transmission Date: 20170207
  Serious: Yes (Hospitalization, Other)
  Sender: FDA-Public Use
  Company Number: US-JNJFOC-20160508165

PATIENT
  Age: 92 Year
  Sex: Male
  Weight: 77.11 kg

DRUGS (3)
  1. XARELTO [Suspect]
     Active Substance: RIVAROXABAN
     Indication: ATRIAL FIBRILLATION
     Dosage: STOPPED RIVAROXABAN ON 23-AUG-2014
     Route: 048
     Dates: start: 20140731, end: 20140904
  2. XARELTO [Suspect]
     Active Substance: RIVAROXABAN
     Indication: THROMBOSIS PROPHYLAXIS
     Dosage: STOPPED RIVAROXABAN ON 23-AUG-2014
     Route: 048
     Dates: start: 20140731, end: 20140904
  3. XARELTO [Suspect]
     Active Substance: RIVAROXABAN
     Indication: CEREBROVASCULAR ACCIDENT PROPHYLAXIS
     Dosage: STOPPED RIVAROXABAN ON 23-AUG-2014
     Route: 048
     Dates: start: 20140731, end: 20140904

REACTIONS (4)
  - Epistaxis [Unknown]
  - Scrotal swelling [Unknown]
  - Haemorrhage [Unknown]
  - Abdominal distension [Unknown]

NARRATIVE: CASE EVENT DATE: 20140818
